FAERS Safety Report 15344075 (Version 1)
Quarter: 2018Q4

REPORT INFORMATION
  Report Type: Spontaneous
  Country: US (occurrence: US)
  Receive Date: 20180903
  Receipt Date: 20180903
  Transmission Date: 20190204
  Serious: No
  Sender: FDA-Public Use
  Company Number: PHEH2018US035786

PATIENT
  Sex: Male

DRUGS (1)
  1. TRILEPTAL [Suspect]
     Active Substance: OXCARBAZEPINE
     Indication: PRODUCT USED FOR UNKNOWN INDICATION
     Dosage: 50 ML, QD (15 ML BID AND 20 ML AT NIGHT)
     Route: 048

REACTIONS (6)
  - Brain neoplasm [Unknown]
  - Product packaging issue [Unknown]
  - Syringe issue [Unknown]
  - Product quality issue [Unknown]
  - Device leakage [Unknown]
  - Device issue [Unknown]
